FAERS Safety Report 8888946 (Version 2)
Quarter: 2013Q3

REPORT INFORMATION
  Report Type: Report from Study
  Country: MX (occurrence: MX)
  Receive Date: 20121106
  Receipt Date: 20130722
  Transmission Date: 20140515
  Serious: Yes (Death)
  Sender: FDA-Public Use
  Company Number: PHHY2012MX088958

PATIENT
  Age: 94 Year
  Sex: Female

DRUGS (6)
  1. DIOVAN [Suspect]
     Indication: HYPERTENSION
     Dosage: 1 DF (80 MG VALS) PER DAY
     Route: 048
     Dates: start: 20100708
  2. DIOVAN [Suspect]
     Dosage: 0.5 DF (80 MG VAL) PER DAY
     Route: 048
     Dates: start: 20100708
  3. DIOVAN [Suspect]
     Dosage: 1 DF (320 MG VALS) PER DAY
     Route: 048
  4. DIOVAN [Suspect]
     Dosage: 0.5 DF (320 MG VALS) PER DAY
     Route: 048
  5. DIOVAN [Suspect]
     Dosage: 0.5 DF (80 MG VALS), UNK
  6. AMARYL [Concomitant]
     Dosage: 0.5 DF, UNK
     Route: 048
     Dates: start: 2002

REACTIONS (3)
  - Infarction [Fatal]
  - Hypotension [Recovered/Resolved]
  - Wrong technique in drug usage process [Unknown]
